FAERS Safety Report 7501821-9 (Version None)
Quarter: 2011Q2

REPORT INFORMATION
  Report Type: 
  Country: None (occurrence: None)
  Receive Date: 20110525
  Receipt Date: 20110120
  Transmission Date: 20111010
  Serious: Yes (Other)
  Sender: FDA-Public Use
  Company Number: US-BAYER-201038014NA

PATIENT
  Age: 29 Year
  Sex: Female
  Weight: 79.365 kg

DRUGS (15)
  1. ALBUTEROL SULFATE AUTOHALER [Concomitant]
     Dosage: 90MCG/ACTUATION
  2. HYDROXYCHLOROQUINE SULFATE [Concomitant]
     Dosage: 200 MG, UNK
  3. TRETINOIN [Concomitant]
     Dosage: GEL 0.01%
  4. DOCUSATE SODIUM [Concomitant]
     Dosage: 100 MG, UNK
  5. CONCERTA [Concomitant]
     Dosage: 18 MG, UNK
  6. ACETAMINOPHEN W/ PROPOXYPHENE HCL [Concomitant]
     Dosage: 100-650MG
  7. MINOCYCLINE HCL [Concomitant]
     Dosage: 100 MG, UNK
  8. LEVOTHROID [Concomitant]
     Dosage: 50MCG
  9. PROMETHAZINE [Concomitant]
     Dosage: 25 MG, UNK
  10. YASMIN [Suspect]
     Indication: ACNE
     Dosage: UNK
     Dates: start: 20040101, end: 20090101
  11. CYMBALTA [Concomitant]
     Dosage: 60 MG, UNK
  12. LAMICTAL [Concomitant]
     Dosage: 25-100MG
  13. YASMIN [Suspect]
     Indication: CONTRACEPTION
     Route: 048
     Dates: start: 20050101
  14. FAMOTIDINE [Concomitant]
     Dosage: 40 MG, UNK
  15. FLUTICASONE PROPIONATE [Concomitant]
     Dosage: 50MCG/ACTUATION

REACTIONS (8)
  - ABDOMINAL PAIN [None]
  - VOMITING [None]
  - CHOLECYSTITIS CHRONIC [None]
  - CHOLELITHIASIS [None]
  - NAUSEA [None]
  - BILIARY DYSKINESIA [None]
  - CHOLECYSTITIS [None]
  - GALLBLADDER DISORDER [None]
